FAERS Safety Report 25839553 (Version 2)
Quarter: 2025Q3

REPORT INFORMATION
  Report Type: Spontaneous
  Country: US (occurrence: US)
  Receive Date: 20250924
  Receipt Date: 20250925
  Transmission Date: 20251021
  Serious: No
  Sender: JOHNSON AND JOHNSON
  Company Number: US-JNJFOC-20250923263

PATIENT
  Age: 76 Year
  Sex: Female

DRUGS (1)
  1. RYBREVANT [Suspect]
     Active Substance: AMIVANTAMAB-VMJW
     Indication: Lung carcinoma cell type unspecified stage IV
     Route: 065
     Dates: start: 202501

REACTIONS (9)
  - Adverse drug reaction [Unknown]
  - Product dose omission issue [Unknown]
  - Paronychia [Unknown]
  - Stomatitis [Unknown]
  - Lip blister [Unknown]
  - Skin haemorrhage [Unknown]
  - Skin fragility [Unknown]
  - Vaginal mucosal blistering [Unknown]
  - Skin lesion [Unknown]

NARRATIVE: CASE EVENT DATE: 20250915
